FAERS Safety Report 10342968 (Version 2)
Quarter: 2014Q3

REPORT INFORMATION
  Report Type: Report from Study
  Country: JP (occurrence: JP)
  Receive Date: 20140725
  Receipt Date: 20140725
  Transmission Date: 20150326
  Serious: Yes (Hospitalization, Other)
  Sender: FDA-Public Use
  Company Number: PHHO2011JP01866

PATIENT
  Weight: 52 kg

DRUGS (7)
  1. COMPARATOR TRASTUZUMAB [Suspect]
     Active Substance: TRASTUZUMAB
     Indication: BREAST CANCER METASTATIC
     Dosage: 100 MG, UNK
     Route: 042
     Dates: start: 20100202, end: 20100722
  2. NAVELBINE [Suspect]
     Active Substance: VINORELBINE TARTRATE
     Indication: BREAST CANCER METASTATIC
     Dosage: 37 MG, UNK
     Route: 042
     Dates: start: 20110118, end: 20110118
  3. AFINITOR [Suspect]
     Active Substance: EVEROLIMUS
     Indication: BREAST CANCER METASTATIC
     Dosage: CODE NOT BROKEN
     Route: 048
     Dates: start: 20100202, end: 20100818
  4. BLINDED NO TREATMENT RECEIVED [Suspect]
     Active Substance: UNSPECIFIED INGREDIENT
     Indication: BREAST CANCER METASTATIC
     Dosage: CODE NOT BROKEN
     Route: 048
     Dates: start: 20100202, end: 20100818
  5. COMPARATOR TRASTUZUMAB [Suspect]
     Active Substance: TRASTUZUMAB
     Dosage: 100 MG, UNK
     Route: 042
     Dates: start: 20110118, end: 20110118
  6. PLACEBO [Suspect]
     Active Substance: UNSPECIFIED INGREDIENT
     Indication: BREAST CANCER METASTATIC
     Dosage: CODE NOT BROKEN
     Route: 048
     Dates: start: 20100202, end: 20100818
  7. COMPARATOR PACLITAXEL [Suspect]
     Active Substance: PACLITAXEL
     Indication: BREAST CANCER METASTATIC
     Dosage: UNK
     Route: 042
     Dates: start: 20100202, end: 20110104

REACTIONS (4)
  - Neoplasm progression [Unknown]
  - Malignant neoplasm progression [Unknown]
  - Interstitial lung disease [Recovered/Resolved]
  - Pyrexia [Recovered/Resolved]

NARRATIVE: CASE EVENT DATE: 20110111
